FAERS Safety Report 8133025 (Version 3)
Quarter: 2013Q1

REPORT INFORMATION
  Report Type: Spontaneous
  Country: JP (occurrence: JP)
  Receive Date: 20110913
  Receipt Date: 20130107
  Transmission Date: 20140127
  Serious: Yes (Death, Life-Threatening, Other)
  Sender: FDA-Public Use
  Company Number: JP-ROCHE-801117

PATIENT
  Age: 74 Year
  Sex: Male
  Weight: 48 kg

DRUGS (8)
  1. HERCEPTIN [Suspect]
     Indication: METASTATIC GASTRIC CANCER
     Route: 041
     Dates: start: 20110725, end: 20110725
  2. TS-1 [Suspect]
     Indication: METASTATIC GASTRIC CANCER
     Route: 041
     Dates: start: 20110725, end: 20110807
  3. BRIPLATIN [Suspect]
     Indication: METASTATIC GASTRIC CANCER
     Route: 041
     Dates: start: 20110727, end: 20110727
  4. LOXOPROFEN [Concomitant]
     Route: 048
  5. DEXART [Concomitant]
     Route: 041
     Dates: start: 20110727, end: 20110727
  6. DEXART [Concomitant]
     Route: 041
     Dates: start: 20110728, end: 20110729
  7. FERO-GRADUMET [Concomitant]
     Route: 048
     Dates: start: 20110727, end: 20110807
  8. GRANISETRON HYDROCHLORIDE [Concomitant]
     Route: 041
     Dates: start: 20110727, end: 20110729

REACTIONS (20)
  - Pneumonia aspiration [Not Recovered/Not Resolved]
  - Intestinal obstruction [Unknown]
  - Blood potassium increased [Fatal]
  - Mesenteric artery thrombosis [Fatal]
  - Disseminated intravascular coagulation [Fatal]
  - Renal impairment [Not Recovered/Not Resolved]
  - Bone marrow failure [Not Recovered/Not Resolved]
  - Intestinal obstruction [Unknown]
  - Arteriosclerosis [Not Recovered/Not Resolved]
  - Nausea [Recovering/Resolving]
  - Insomnia [Recovering/Resolving]
  - Diarrhoea [Unknown]
  - Nausea [Not Recovered/Not Resolved]
  - Abdominal pain [Unknown]
  - Vomiting [Not Recovered/Not Resolved]
  - Decreased appetite [Unknown]
  - Dehydration [Not Recovered/Not Resolved]
  - Diarrhoea [Unknown]
  - Pancytopenia [Fatal]
  - Metastases to peritoneum [Unknown]
